FAERS Safety Report 9034168 (Version 1)
Quarter: 2013Q1

REPORT INFORMATION
  Report Type: Spontaneous
  Country: AU (occurrence: AU)
  Receive Date: 20130128
  Receipt Date: 20130128
  Transmission Date: 20140127
  Serious: Yes (Other)
  Sender: FDA-Public Use
  Company Number: AU-AMGEN-AUSSP2011009235

PATIENT
  Age: 50 Year
  Sex: Male
  Weight: 71 kg

DRUGS (2)
  1. NPLATE [Suspect]
     Dosage: 3 MUG/KG, UNK
     Dates: start: 20080213
  2. NPLATE [Suspect]
     Dosage: 2 MUG/KG, UNK
     Dates: end: 20100930

REACTIONS (1)
  - Drug ineffective [Unknown]
